FAERS Safety Report 15232742 (Version 2)
Quarter: 2018Q3

REPORT INFORMATION
  Report Type: Report from Study
  Country: GB (occurrence: GB)
  Receive Date: 20180802
  Receipt Date: 20180822
  Transmission Date: 20181010
  Serious: Yes (Hospitalization)
  Sender: FDA-Public Use
  Company Number: GB-EISAI MEDICAL RESEARCH-EC-2018-043545

PATIENT
  Age: 67 Year
  Sex: Male
  Weight: 75 kg

DRUGS (10)
  1. EVEROLIMUS. [Suspect]
     Active Substance: EVEROLIMUS
     Indication: RENAL CELL CARCINOMA
     Route: 048
     Dates: start: 20180420, end: 20180730
  2. HYDOMOL [Concomitant]
  3. ELOCON [Concomitant]
     Active Substance: MOMETASONE FUROATE
  4. EVEROLIMUS. [Suspect]
     Active Substance: EVEROLIMUS
     Dosage: UNKNOWN
     Route: 048
     Dates: start: 201808
  5. LENVATINIB [Suspect]
     Active Substance: LENVATINIB
     Dosage: UNKNOWN
     Route: 048
     Dates: start: 201808
  6. BISOPROLOL [Concomitant]
     Active Substance: BISOPROLOL
  7. LENVATINIB [Suspect]
     Active Substance: LENVATINIB
     Route: 048
     Dates: start: 20180524, end: 20180730
  8. CETRABEN CREAM [Concomitant]
  9. LENVATINIB [Suspect]
     Active Substance: LENVATINIB
     Indication: RENAL CELL CARCINOMA
     Route: 048
     Dates: start: 20180420, end: 20180523
  10. CLOBAVATE [Concomitant]

REACTIONS (1)
  - Pneumonia [Recovering/Resolving]

NARRATIVE: CASE EVENT DATE: 20180727
